FAERS Safety Report 8784751 (Version 1)
Quarter: 2012Q4

REPORT INFORMATION
  Report Type: 
  Country: US (occurrence: US)
  Receive Date: 20120914
  Receipt Date: 20120914
  Transmission Date: 20130627
  Serious: Yes (Other)
  Sender: FDA-Public Use
  Company Number: US-ABBOTT-12P-163-0976804-00

PATIENT
  Age: 37 Year
  Sex: Female

DRUGS (2)
  1. HUMIRA [Suspect]
     Indication: RHEUMATOID ARTHRITIS
     Dates: start: 200906, end: 201012
  2. CIMZIA [Concomitant]
     Indication: RHEUMATOID ARTHRITIS
     Dates: start: 201101

REACTIONS (3)
  - Neuroendocrine tumour [Unknown]
  - Carcinoid tumour of the appendix [Unknown]
  - Appendicectomy [Recovered/Resolved]
